FAERS Safety Report 7309299-5 (Version None)
Quarter: 2011Q1

REPORT INFORMATION
  Report Type: 
  Country: None (occurrence: None)
  Receive Date: 20110223
  Receipt Date: 20110214
  Transmission Date: 20110831
  Serious: Yes (Other)
  Sender: FDA-Public Use
  Company Number: FR-ROCHE-760471

PATIENT
  Age: 84 Year
  Sex: Male

DRUGS (2)
  1. XELODA [Suspect]
     Route: 065
  2. AVASTIN [Suspect]
     Route: 065

REACTIONS (4)
  - ABDOMINAL RIGIDITY [None]
  - HEMIPARESIS [None]
  - RESPIRATORY DISORDER [None]
  - DIARRHOEA [None]
